FAERS Safety Report 24320953 (Version 1)
Quarter: 2024Q3

REPORT INFORMATION
  Report Type: Spontaneous
  Country: IT (occurrence: IT)
  Receive Date: 20240915
  Receipt Date: 20240915
  Transmission Date: 20241017
  Serious: No
  Sender: SANDOZ
  Company Number: IT-SANDOZ-SDZ2024IT079184

PATIENT
  Sex: Male

DRUGS (1)
  1. OMNITROPE [Suspect]
     Active Substance: SOMATROPIN
     Indication: Product used for unknown indication
     Dosage: UNK FIVE 0.1 MG INJECTIONS TO REACH 5 MG
     Route: 065

REACTIONS (2)
  - Wrong technique in product usage process [Unknown]
  - Device occlusion [Unknown]
